FAERS Safety Report 12360319 (Version 1)
Quarter: 2016Q2

REPORT INFORMATION
  Report Type: Report from Study
  Country: KR (occurrence: KR)
  Receive Date: 20160512
  Receipt Date: 20160512
  Transmission Date: 20160815
  Serious: Yes (Hospitalization, Other)
  Sender: FDA-Public Use
  Company Number: KR-ELI_LILLY_AND_COMPANY-KP201604010410

PATIENT
  Age: 58 Year
  Sex: Female
  Weight: 69.5 kg

DRUGS (2)
  1. PACLITAXEL. [Concomitant]
     Active Substance: PACLITAXEL
     Indication: ADENOCARCINOMA GASTRIC
     Dosage: UNK
     Route: 065
     Dates: start: 20151104, end: 20160418
  2. RAMUCIRUMAB [Suspect]
     Active Substance: RAMUCIRUMAB
     Indication: ADENOCARCINOMA GASTRIC
     Dosage: 8 MG/KG, EVERY 2 WEEKS
     Route: 042
     Dates: start: 20151104, end: 20160418

REACTIONS (2)
  - Abdominal pain [Not Recovered/Not Resolved]
  - Malignant neoplasm progression [Unknown]

NARRATIVE: CASE EVENT DATE: 20160425
